FAERS Safety Report 4550915-9 (Version None)
Quarter: 2004Q4

REPORT INFORMATION
  Report Type: 
  Country: None (occurrence: None)
  Receive Date: 20041217
  Receipt Date: 20040907
  Transmission Date: 20050328
  Serious: No
  Sender: FDA-Public Use
  Company Number: 2004-BP-07839BP(0)

PATIENT
  Age: 67 Year
  Sex: Male

DRUGS (8)
  1. SPIRIVA [Suspect]
     Indication: CHRONIC OBSTRUCTIVE AIRWAYS DISEASE
     Dosage: 18 MCG (19 MCG), IH
     Route: 025
     Dates: start: 20040701
  2. PROVENTIL (SALBUTAMOL SULFATE0 [Concomitant]
  3. PREDNISONE [Concomitant]
  4. LIPITOR [Concomitant]
  5. ATENOLOL [Concomitant]
  6. AVANDAMET [Concomitant]
  7. NISAPAN [Concomitant]
  8. ACETYLSALICYLIC ACID SRT [Concomitant]

REACTIONS (1)
  - DRUG INEFFECTIVE [None]
